FAERS Safety Report 6228119-3 (Version None)
Quarter: 2009Q2

REPORT INFORMATION
  Report Type: 
  Country: None (occurrence: None)
  Receive Date: 20090612
  Receipt Date: 20090609
  Transmission Date: 20091009
  Serious: Yes (Hospitalization, Other)
  Sender: FDA-Public Use
  Company Number: FR-JNJFOC-20080701559

PATIENT
  Age: 78 Year
  Sex: Female

DRUGS (2)
  1. REMINYL [Suspect]
     Indication: DEMENTIA ALZHEIMER'S TYPE
     Dates: start: 20040201, end: 20060301
  2. ZYPREXA [Suspect]
     Indication: ABNORMAL BEHAVIOUR

REACTIONS (2)
  - DYSTONIA [None]
  - PLEUROTHOTONUS [None]
